FAERS Safety Report 7386916-5 (Version None)
Quarter: 2011Q1

REPORT INFORMATION
  Report Type: 
  Country: None (occurrence: None)
  Receive Date: 20110331
  Receipt Date: 20110322
  Transmission Date: 20110831
  Serious: Yes (Hospitalization)
  Sender: FDA-Public Use
  Company Number: US-JNJFOC-20110310866

PATIENT
  Sex: Female
  Weight: 49.9 kg

DRUGS (4)
  1. RISPERDAL M-TABS [Suspect]
     Dosage: DAILY
     Route: 048
  2. RISPERDAL M-TABS [Suspect]
     Indication: PRODUCT USED FOR UNKNOWN INDICATION
     Dosage: DAILY
     Route: 048
  3. RISPERDAL M-TABS [Suspect]
     Dosage: DAILY
     Route: 048
  4. RISPERDAL M-TABS [Suspect]
     Route: 048

REACTIONS (4)
  - ALOPECIA [None]
  - BLOOD PROLACTIN INCREASED [None]
  - ANGER [None]
  - TREMOR [None]
